FAERS Safety Report 14677447 (Version 4)
Quarter: 2019Q1

REPORT INFORMATION
  Report Type: Spontaneous
  Country: FR (occurrence: FR)
  Receive Date: 20180325
  Receipt Date: 20190318
  Transmission Date: 20190417
  Serious: Yes (Other)
  Sender: FDA-Public Use
  Company Number: FR-MYLANLABS-2018M1017357

PATIENT
  Age: 71 Year
  Sex: Female

DRUGS (4)
  1. DEXAMETHASONE. [Suspect]
     Active Substance: DEXAMETHASONE
     Dosage: 40 MG, DAYS 1, 8, 15, 22 EVERY 28 D; REPEATED EVERY 4 WK
     Route: 048
  2. DEXAMETHASONE. [Suspect]
     Active Substance: DEXAMETHASONE
     Indication: PLASMA CELL MYELOMA
     Dosage: 20 MG, ON DAYS 1-2, 4-5, 8-9, AND 11-12 OF EACH CYCLE
     Route: 065
  3. BORTEZOMIB. [Suspect]
     Active Substance: BORTEZOMIB
     Indication: PLASMA CELL MYELOMA
     Dosage: UNK, CYCLE (ON DAYS 1-4- 8-11 IN 21-DAY CYCLES)
     Route: 058
  4. LENALIDOMIDE [Suspect]
     Active Substance: LENALIDOMIDE
     Indication: PLASMA CELL MYELOMA
     Dosage: 25 MG, DAYS 1-21EVERY 28 DAYS
     Route: 048

REACTIONS (8)
  - Plasma cells present [Recovering/Resolving]
  - Bone pain [Recovering/Resolving]
  - Monoclonal immunoglobulin present [Recovering/Resolving]
  - Disease progression [Recovering/Resolving]
  - Anaemia [Recovering/Resolving]
  - Plasma cell myeloma [Recovering/Resolving]
  - Neuropathy peripheral [Not Recovered/Not Resolved]
  - Neoplasm progression [Recovering/Resolving]

NARRATIVE: CASE EVENT DATE: 2014
